FAERS Safety Report 19621040 (Version 1)
Quarter: 2021Q3

REPORT INFORMATION
  Report Type: Spontaneous
  Country: US (occurrence: US)
  Receive Date: 20210728
  Receipt Date: 20210728
  Transmission Date: 20211014
  Serious: Yes (Hospitalization)
  Sender: FDA-Public Use
  Company Number: US-ABBVIE-21K-163-4006755-00

PATIENT
  Sex: Male

DRUGS (7)
  1. DEXMETHYLPHENIDATE [Concomitant]
     Active Substance: DEXMETHYLPHENIDATE HYDROCHLORIDE
     Indication: ATTENTION DEFICIT HYPERACTIVITY DISORDER
  2. HUMIRA [Suspect]
     Active Substance: ADALIMUMAB
     Indication: CROHN^S DISEASE
     Route: 058
     Dates: start: 202104
  3. GUAIFENESIN. [Concomitant]
     Active Substance: GUAIFENESIN
     Indication: ATTENTION DEFICIT HYPERACTIVITY DISORDER
  4. CELEXA [Concomitant]
     Active Substance: CITALOPRAM HYDROBROMIDE
     Indication: OBSESSIVE-COMPULSIVE DISORDER
  5. GUAIFENESIN. [Concomitant]
     Active Substance: GUAIFENESIN
     Indication: ATTENTION DEFICIT HYPERACTIVITY DISORDER
  6. PEPCID [Concomitant]
     Active Substance: FAMOTIDINE
     Indication: CROHN^S DISEASE
  7. CETIRIZINE [Concomitant]
     Active Substance: CETIRIZINE HYDROCHLORIDE
     Indication: SEASONAL ALLERGY

REACTIONS (6)
  - Faecal calprotectin increased [Unknown]
  - Alanine aminotransferase increased [Unknown]
  - Aspartate aminotransferase increased [Unknown]
  - Abdominal pain [Recovered/Resolved]
  - Hepatitis [Not Recovered/Not Resolved]
  - Gamma-glutamyltransferase increased [Unknown]

NARRATIVE: CASE EVENT DATE: 2021
